FAERS Safety Report 23829773 (Version 1)
Quarter: 2024Q2

REPORT INFORMATION
  Report Type: Report from Study
  Country: US (occurrence: US)
  Receive Date: 20240508
  Receipt Date: 20240508
  Transmission Date: 20240716
  Serious: Yes (Other)
  Sender: FDA-Public Use
  Company Number: US-002147023-NVSC2024US069372

PATIENT
  Sex: Female

DRUGS (2)
  1. KISQALI [Suspect]
     Active Substance: RIBOCICLIB
     Indication: Breast cancer
     Dosage: 400 MG, QD
     Route: 048
  2. KISQALI [Suspect]
     Active Substance: RIBOCICLIB
     Dosage: 200 MG, QD (DOSE REDUCED)
     Route: 048

REACTIONS (6)
  - Renal impairment [Recovering/Resolving]
  - Nausea [Recovering/Resolving]
  - Influenza [Unknown]
  - Vomiting [Recovering/Resolving]
  - Fatigue [Unknown]
  - Laziness [Unknown]
